FAERS Safety Report 6371765-7 (Version None)
Quarter: 2009Q3

REPORT INFORMATION
  Report Type: 
  Country: None (occurrence: None)
  Receive Date: 20090918
  Receipt Date: 20090918
  Transmission Date: 20100115
  Serious: Yes (Other)
  Sender: FDA-Public Use
  Company Number: None

PATIENT
  Sex: Male
  Weight: 49.7 kg

DRUGS (1)
  1. CREON [Suspect]
     Indication: CYSTIC FIBROSIS

REACTIONS (1)
  - PRODUCT QUALITY ISSUE [None]
